FAERS Safety Report 6006936-2 (Version None)
Quarter: 2008Q4

REPORT INFORMATION
  Report Type: 
  Country: None (occurrence: None)
  Receive Date: 20081217
  Receipt Date: 20071122
  Transmission Date: 20090506
  Serious: No
  Sender: FDA-Public Use
  Company Number: US-ASTRAZENECA-2007UW27006

PATIENT
  Age: 86 Year
  Sex: Male

DRUGS (4)
  1. CRESTOR [Suspect]
     Route: 048
  2. ENALAPRIL MALEATE [Concomitant]
  3. COUMADIN [Concomitant]
  4. COREG [Concomitant]

REACTIONS (2)
  - HEPATOMEGALY [None]
  - LIVER TENDERNESS [None]
